FAERS Safety Report 18015946 (Version 3)
Quarter: 2021Q4

REPORT INFORMATION
  Report Type: Report from Study
  Country: FR (occurrence: FR)
  Receive Date: 20200713
  Receipt Date: 20211112
  Transmission Date: 20220303
  Serious: Yes (Death, Other)
  Sender: FDA-Public Use
  Company Number: FR-JNJFOC-20200709901

PATIENT
  Age: 71 Year
  Sex: Female

DRUGS (3)
  1. BORTEZOMIB [Suspect]
     Active Substance: BORTEZOMIB
     Indication: Plasma cell myeloma
     Dosage: 1.3 MILLIGRAM/SQ. METER, 2/WEEK
     Route: 065
     Dates: start: 20171124
  2. DOXORUBICIN HYDROCHLORIDE [Suspect]
     Active Substance: DOXORUBICIN HYDROCHLORIDE
     Indication: Plasma cell myeloma
     Dosage: 4.5 MILLIGRAM/SQ. METER, 3/WEEK
     Route: 065
     Dates: start: 20171124
  3. BENDAMUSTINE [Suspect]
     Active Substance: BENDAMUSTINE
     Indication: Plasma cell myeloma
     Dosage: 40 MILLIGRAM/SQ. METER, 4/WEEK
     Route: 065
     Dates: start: 20171124

REACTIONS (3)
  - Plasma cell myeloma [Fatal]
  - Product use issue [Unknown]
  - Off label use [Unknown]
